FAERS Safety Report 4931255-2 (Version None)
Quarter: 2006Q1

REPORT INFORMATION
  Report Type: 
  Country: None (occurrence: None)
  Receive Date: 20060302
  Receipt Date: 20060220
  Transmission Date: 20060701
  Serious: Yes (Hospitalization)
  Sender: FDA-Public Use
  Company Number: US-MERCK-0602USA05193

PATIENT
  Age: 69 Year
  Sex: Male
  Weight: 87 kg

DRUGS (6)
  1. VIOXX [Suspect]
     Indication: ARTHRITIS
     Route: 048
     Dates: start: 19990720, end: 20030202
  2. TENORMIN [Concomitant]
     Route: 065
  3. VASOTEC RPD [Concomitant]
     Route: 065
  4. HYTRIN [Concomitant]
     Route: 065
  5. RANITIDINE [Concomitant]
     Route: 065
  6. DYAZIDE [Concomitant]
     Route: 065

REACTIONS (9)
  - ATRIAL FIBRILLATION [None]
  - CHEST PAIN [None]
  - CONVULSION [None]
  - CORONARY ARTERY DISEASE [None]
  - DIARRHOEA [None]
  - GRAND MAL CONVULSION [None]
  - HYPOKALAEMIA [None]
  - ISCHAEMIC STROKE [None]
  - MYOCARDIAL INFARCTION [None]
